FAERS Safety Report 6010976-7 (Version None)
Quarter: 2008Q4

REPORT INFORMATION
  Report Type: 
  Country: None (occurrence: None)
  Receive Date: 20081218
  Receipt Date: 20081208
  Transmission Date: 20090506
  Serious: Yes (Hospitalization)
  Sender: FDA-Public Use
  Company Number: B0549684A

PATIENT
  Age: 37 Year
  Sex: Male

DRUGS (4)
  1. LAMICTAL [Suspect]
     Route: 048
  2. APODORM [Concomitant]
     Route: 065
  3. SOBRIL [Concomitant]
     Route: 065
  4. MINIRIN [Concomitant]
     Route: 065

REACTIONS (5)
  - BALANCE DISORDER [None]
  - DIPLOPIA [None]
  - DIZZINESS [None]
  - DYSARTHRIA [None]
  - NAUSEA [None]
